FAERS Safety Report 26146956 (Version 1)
Quarter: 2025Q4

REPORT INFORMATION
  Report Type: Spontaneous
  Country: CA (occurrence: CA)
  Receive Date: 20251211
  Receipt Date: 20251211
  Transmission Date: 20260117
  Serious: Yes (Other)
  Sender: JOHNSON AND JOHNSON
  Company Number: CA-JNJFOC-20251214231

PATIENT
  Age: 14 Year
  Sex: Male

DRUGS (6)
  1. INFLIXIMAB [Suspect]
     Active Substance: INFLIXIMAB
     Indication: Myelitis transverse
     Route: 041
  2. INFLIXIMAB [Suspect]
     Active Substance: INFLIXIMAB
     Indication: Behcet^s syndrome
  3. METHYLPREDNISOLONE [Suspect]
     Active Substance: METHYLPREDNISOLONE
     Indication: Myelitis transverse
     Route: 042
  4. METHYLPREDNISOLONE [Suspect]
     Active Substance: METHYLPREDNISOLONE
     Indication: Behcet^s syndrome
  5. PREDNISONE [Suspect]
     Active Substance: PREDNISONE
     Indication: Myelitis transverse
     Route: 048
  6. PREDNISONE [Suspect]
     Active Substance: PREDNISONE
     Indication: Behcet^s syndrome

REACTIONS (3)
  - Neuralgia [Unknown]
  - Off label use [Unknown]
  - Seizure [Unknown]
